FAERS Safety Report 17731024 (Version 2)
Quarter: 2020Q4

REPORT INFORMATION
  Report Type: Other
  Country: US (occurrence: US)
  Receive Date: 20200430
  Receipt Date: 20201215
  Transmission Date: 20210113
  Serious: Yes (Other)
  Sender: FDA-Public Use
  Company Number: US-ROCHE-2345742

PATIENT
  Age: 30 Year
  Sex: Female
  Weight: 56.75 kg

DRUGS (19)
  1. TYMLOS [Suspect]
     Active Substance: ABALOPARATIDE
     Indication: OSTEOPOROSIS
     Route: 065
  2. BUSPAR [Concomitant]
     Active Substance: BUSPIRONE HYDROCHLORIDE
     Indication: ANXIETY
  3. OCREVUS [Suspect]
     Active Substance: OCRELIZUMAB
     Indication: RELAPSING-REMITTING MULTIPLE SCLEROSIS
     Route: 042
     Dates: start: 20180131
  4. OCREVUS [Suspect]
     Active Substance: OCRELIZUMAB
     Indication: PRIMARY PROGRESSIVE MULTIPLE SCLEROSIS
     Route: 042
     Dates: start: 20180723
  5. OCREVUS [Suspect]
     Active Substance: OCRELIZUMAB
     Route: 042
     Dates: start: 20190128
  6. PAXIL [Concomitant]
     Active Substance: PAROXETINE HYDROCHLORIDE
     Indication: ANXIETY
  7. VIT D [COLECALCIFEROL] [Concomitant]
     Indication: VITAMIN D DEFICIENCY
  8. TEMAZEPAM. [Concomitant]
     Active Substance: TEMAZEPAM
  9. BENADRYL [Suspect]
     Active Substance: DIPHENHYDRAMINE HYDROCHLORIDE
     Indication: PRODUCT USED FOR UNKNOWN INDICATION
     Route: 065
  10. ADVAIR HFA [Concomitant]
     Active Substance: FLUTICASONE PROPIONATE\SALMETEROL XINAFOATE
     Indication: ASTHMA
  11. BACLOFEN. [Concomitant]
     Active Substance: BACLOFEN
     Indication: MUSCLE RELAXANT THERAPY
  12. OCREVUS [Suspect]
     Active Substance: OCRELIZUMAB
     Indication: MULTIPLE SCLEROSIS
     Route: 042
     Dates: start: 201707
  13. LAMOTRIGINE. [Concomitant]
     Active Substance: LAMOTRIGINE
     Indication: ANXIETY
  14. PERCOCET [Concomitant]
     Active Substance: ACETAMINOPHEN\OXYCODONE HYDROCHLORIDE
     Indication: PAIN
  15. OCREVUS [Suspect]
     Active Substance: OCRELIZUMAB
     Route: 042
     Dates: start: 20190722
  16. VENTOLIN [Concomitant]
     Active Substance: ALBUTEROL SULFATE
     Indication: ASTHMA
  17. CALCIUM [Concomitant]
     Active Substance: CALCIUM
     Indication: OSTEOPOROSIS
     Dosage: INDICATION:TO HELP ABSORB VITAMIN D
  18. VIT D [COLECALCIFEROL] [Concomitant]
     Indication: MULTIPLE SCLEROSIS
  19. ADDERALL [Concomitant]
     Active Substance: AMPHETAMINE ASPARTATE\AMPHETAMINE SULFATE\DEXTROAMPHETAMINE SACCHARATE\DEXTROAMPHETAMINE SULFATE
     Indication: FATIGUE

REACTIONS (26)
  - Chest pain [Recovered/Resolved]
  - Urinary tract infection [Not Recovered/Not Resolved]
  - Uterine disorder [Recovered/Resolved]
  - Pneumonia [Recovered/Resolved]
  - Fall [Unknown]
  - Nausea [Unknown]
  - Adenomyosis [Recovered/Resolved]
  - Pain [Not Recovered/Not Resolved]
  - Swelling [Not Recovered/Not Resolved]
  - Bone contusion [Recovered/Resolved]
  - Retching [Unknown]
  - Pain [Not Recovered/Not Resolved]
  - Fatigue [Unknown]
  - Influenza [Unknown]
  - Arthralgia [Recovering/Resolving]
  - Dyspnoea [Unknown]
  - Femoroacetabular impingement [Recovered/Resolved]
  - Chest discomfort [Recovered/Resolved]
  - Osteoporosis [Not Recovered/Not Resolved]
  - Sleep disorder [Recovered/Resolved]
  - Optic neuritis [Recovered/Resolved]
  - Cartilage injury [Recovered/Resolved]
  - Reactive airways dysfunction syndrome [Not Recovered/Not Resolved]
  - Palpitations [Unknown]
  - Body height decreased [Unknown]
  - Asthenia [Unknown]

NARRATIVE: CASE EVENT DATE: 201712
